FAERS Safety Report 4662227-3 (Version None)
Quarter: 2005Q2

REPORT INFORMATION
  Report Type: 
  Country: None (occurrence: None)
  Receive Date: 20050512
  Receipt Date: 20050422
  Transmission Date: 20051028
  Serious: Yes (Other)
  Sender: FDA-Public Use
  Company Number: USA050496324

PATIENT
  Age: 15 Year
  Sex: Male
  Weight: 68 kg

DRUGS (3)
  1. STRATTERA [Suspect]
     Indication: ATTENTION DEFICIT/HYPERACTIVITY DISORDER
     Dosage: 45 MG IN THE MORNING
     Dates: start: 20050422
  2. ADDERALL 10 [Concomitant]
  3. ABILIFY [Concomitant]

REACTIONS (8)
  - ABNORMAL BEHAVIOUR [None]
  - DISSOCIATION [None]
  - FATIGUE [None]
  - HOMICIDAL IDEATION [None]
  - LETHARGY [None]
  - MEMORY IMPAIRMENT [None]
  - SOMNOLENCE [None]
  - SPEECH DISORDER [None]
